FAERS Safety Report 7080031-6 (Version None)
Quarter: 2010Q4

REPORT INFORMATION
  Report Type: 
  Country: None (occurrence: None)
  Receive Date: 20101102
  Receipt Date: 20091118
  Transmission Date: 20110411
  Serious: No
  Sender: FDA-Public Use
  Company Number: US-ABBOTT-09P-163-0610058-00

PATIENT
  Sex: Male

DRUGS (1)
  1. BIAXIN [Suspect]
     Indication: INFECTION
     Dosage: UNKNOWN

REACTIONS (3)
  - JOINT SWELLING [None]
  - OEDEMA PERIPHERAL [None]
  - VOMITING [None]
